FAERS Safety Report 4536750-6 (Version None)
Quarter: 2004Q4

REPORT INFORMATION
  Report Type: 
  Country: None (occurrence: None)
  Receive Date: 20041223
  Receipt Date: 20041217
  Transmission Date: 20050328
  Serious: Yes (Other)
  Sender: FDA-Public Use
  Company Number: US-AMGEN-US104185

PATIENT
  Sex: Male
  Weight: 77.2 kg

DRUGS (1)
  1. PROCRIT [Suspect]
     Indication: MYELODYSPLASTIC SYNDROME
     Dates: start: 20040601, end: 20040801

REACTIONS (2)
  - ACUTE LEUKAEMIA [None]
  - DRUG INEFFECTIVE [None]
